FAERS Safety Report 11639753 (Version 13)
Quarter: 2017Q2

REPORT INFORMATION
  Report Type: Report from Study
  Country: CA (occurrence: CA)
  Receive Date: 20151019
  Receipt Date: 20170505
  Transmission Date: 20170829
  Serious: Yes (Hospitalization, Other)
  Sender: FDA-Public Use
  Company Number: PHHY2015CA075468

PATIENT
  Age: 82 Year
  Sex: Male

DRUGS (2)
  1. SANDOSTATIN LAR DEPOT [Suspect]
     Active Substance: OCTREOTIDE ACETATE
     Dosage: 20 MG, QMO (ONCE A MONTH)
     Route: 030
  2. SANDOSTATIN LAR DEPOT [Suspect]
     Active Substance: OCTREOTIDE ACETATE
     Indication: ANGIODYSPLASIA
     Dosage: 20 MG, QMO (EVERY 4 WEEKS)
     Route: 030
     Dates: start: 20150522

REACTIONS (31)
  - Body temperature decreased [Unknown]
  - Product use in unapproved indication [Unknown]
  - Productive cough [Unknown]
  - Bradycardia [Unknown]
  - Blood iron decreased [Unknown]
  - Haemoglobin increased [Unknown]
  - Scratch [Unknown]
  - Haemorrhage [Unknown]
  - Thrombosis [Unknown]
  - Cough [Unknown]
  - Neoplasm progression [Unknown]
  - Tumour pain [Unknown]
  - Sputum discoloured [Unknown]
  - Dizziness [Unknown]
  - Blood pressure decreased [Unknown]
  - Blood pressure diastolic decreased [Not Recovered/Not Resolved]
  - Fatigue [Unknown]
  - Asthenia [Unknown]
  - Loss of consciousness [Unknown]
  - Blood pressure systolic increased [Unknown]
  - Abdominal neoplasm [Unknown]
  - Red blood cell count decreased [Unknown]
  - Otorrhoea [Not Recovered/Not Resolved]
  - Blood glucose decreased [Unknown]
  - Contusion [Unknown]
  - Pneumonia [Unknown]
  - Chills [Unknown]
  - Ear infection [Unknown]
  - Feeling hot [Unknown]
  - Heart rate irregular [Unknown]
  - Aortic occlusion [Unknown]

NARRATIVE: CASE EVENT DATE: 20150716
